FAERS Safety Report 9319828 (Version 4)
Quarter: 2013Q4

REPORT INFORMATION
  Report Type: Report from Study
  Country: GB (occurrence: GB)
  Receive Date: 20130530
  Receipt Date: 20131115
  Transmission Date: 20140711
  Serious: Yes (Death, Hospitalization)
  Sender: FDA-Public Use
  Company Number: GB-CELGENEUS-167-C5013-12102337

PATIENT
  Age: 51 Year
  Sex: Female
  Weight: 76.8 kg

DRUGS (14)
  1. GEMCITABINE [Suspect]
     Indication: MANTLE CELL LYMPHOMA
     Dosage: 1800 MILLIGRAM
     Route: 065
     Dates: start: 20120806
  2. GEMCITABINE [Suspect]
     Dosage: 1800 MILLIGRAM
     Route: 065
     Dates: start: 20121005, end: 20121119
  3. CC-5013 [Suspect]
     Indication: MANTLE CELL LYMPHOMA
     Dosage: 25 MILLIGRAM
     Route: 048
     Dates: start: 20121203, end: 20121209
  4. CC-5013 [Suspect]
     Dosage: 25 MILLIGRAM
     Route: 048
     Dates: start: 20121213, end: 20121219
  5. OMEPRAZOLE [Concomitant]
     Indication: GASTROOESOPHAGEAL REFLUX DISEASE
     Dosage: 20 MILLIGRAM
     Route: 048
  6. OMEPRAZOLE [Concomitant]
     Indication: DYSPEPSIA
  7. FLUOXETINE [Concomitant]
     Indication: DEPRESSION
     Dosage: 40 MILLIGRAM
     Route: 048
  8. SEPTRIN [Concomitant]
     Indication: ANTIFUNGAL PROPHYLAXIS
     Route: 048
     Dates: start: 20121005
  9. VENTOLIN [Concomitant]
     Indication: CHRONIC OBSTRUCTIVE PULMONARY DISEASE
     Route: 048
     Dates: start: 201211
  10. ASPIRINE [Concomitant]
     Indication: PRODUCT USED FOR UNKNOWN INDICATION
     Dosage: 75 MILLIGRAM
     Route: 048
     Dates: start: 20121203, end: 20121220
  11. ALLOPURINOL [Concomitant]
     Indication: TUMOUR LYSIS SYNDROME
     Dosage: 400 MILLIGRAM
     Route: 048
     Dates: start: 20121203, end: 20121220
  12. ATROVENT [Concomitant]
     Indication: CHRONIC OBSTRUCTIVE PULMONARY DISEASE
     Route: 048
     Dates: start: 201211, end: 20121220
  13. COTRIMOXAZOLE [Concomitant]
     Indication: POLYMERASE CHAIN REACTION
     Dosage: 160 MILLIGRAM
     Route: 048
     Dates: start: 20121005
  14. COTRIMOXAZOLE [Concomitant]
     Indication: DYSPEPSIA

REACTIONS (2)
  - Lower respiratory tract infection [Recovered/Resolved]
  - Mantle cell lymphoma [Fatal]
